FAERS Safety Report 22618849 (Version 5)
Quarter: 2023Q4

REPORT INFORMATION
  Report Type: Spontaneous
  Country: US (occurrence: US)
  Receive Date: 20230620
  Receipt Date: 20231019
  Transmission Date: 20240110
  Serious: Yes (Hospitalization)
  Sender: FDA-Public Use
  Company Number: US-ORPHANEU-2023003533

PATIENT

DRUGS (15)
  1. CARBAGLU [Suspect]
     Active Substance: CARGLUMIC ACID
     Indication: Propionic acidaemia
     Dosage: 600 MILLIGRAM, BID (FRIST SHIPMENT DATE: 31-AUG-2022)
     Dates: start: 2022
  2. CARBAGLU [Suspect]
     Active Substance: CARGLUMIC ACID
     Dosage: 3 TABLETS (900 MG PER DAY)
     Dates: end: 202306
  3. CARBAGLU [Suspect]
     Active Substance: CARGLUMIC ACID
     Dosage: 5 TABLETS (2000 MG PER DAY)
     Dates: start: 202306, end: 2023
  4. CARBAGLU [Suspect]
     Active Substance: CARGLUMIC ACID
     Dosage: 700 MG, BID
     Dates: start: 2023, end: 2023
  5. CARBAGLU [Suspect]
     Active Substance: CARGLUMIC ACID
     Dosage: 1100 MG, BID
     Dates: start: 2023, end: 2023
  6. CARBAGLU [Suspect]
     Active Substance: CARGLUMIC ACID
     Dosage: 1800 MG/DAY
     Dates: start: 2023, end: 2023
  7. CARBAGLU [Suspect]
     Active Substance: CARGLUMIC ACID
     Dosage: 5 DOSAGE FORM, BID (2000 MG/DAY)
     Dates: start: 2023
  8. OMEPRAZOLE [Concomitant]
     Active Substance: OMEPRAZOLE
     Indication: Product used for unknown indication
     Dosage: UNK
     Dates: start: 20220825
  9. ISOLEUCINE [Concomitant]
     Active Substance: ISOLEUCINE
     Indication: Product used for unknown indication
     Dosage: 50 MG/4 GRAM
     Dates: start: 20220825
  10. VALINE [Concomitant]
     Active Substance: VALINE
     Indication: Product used for unknown indication
     Dosage: 50MG PER 4 GRAM PACKET
     Dates: start: 20220825
  11. VITAMIN D3 [Concomitant]
     Active Substance: CHOLECALCIFEROL
     Indication: Product used for unknown indication
     Dosage: 10 (400) ML DROPS
     Dates: start: 20220825
  12. IRON [Concomitant]
     Active Substance: IRON
     Indication: Product used for unknown indication
     Dosage: 325 (65) MG
     Dates: start: 20220825
  13. BIOTIN [Concomitant]
     Active Substance: BIOTIN
     Indication: Product used for unknown indication
     Dosage: 10 MILLIGRAM
     Dates: start: 20220825
  14. LEVOCARNITINE [Concomitant]
     Active Substance: LEVOCARNITINE
     Indication: Product used for unknown indication
     Dosage: 330 MG
     Dates: start: 20220825
  15. KEPPRA [Concomitant]
     Active Substance: LEVETIRACETAM
     Indication: Product used for unknown indication
     Dosage: 250 MG
     Dates: start: 20220825

REACTIONS (5)
  - Ammonia increased [Recovering/Resolving]
  - Hyperammonaemia [Unknown]
  - Ammonia increased [Unknown]
  - Vomiting [Recovered/Resolved]
  - Treatment noncompliance [Recovered/Resolved]

NARRATIVE: CASE EVENT DATE: 20230101
